FAERS Safety Report 19277921 (Version 1)
Quarter: 2021Q2

REPORT INFORMATION
  Report Type: Spontaneous
  Country: KR (occurrence: KR)
  Receive Date: 20210520
  Receipt Date: 20210520
  Transmission Date: 20210717
  Serious: Yes (Hospitalization, Other)
  Sender: FDA-Public Use
  Company Number: KR-SUN PHARMACEUTICAL INDUSTRIES LTD-2021R1-297225

PATIENT
  Age: 71 Year
  Sex: Male

DRUGS (1)
  1. FLURAZEPAM [Suspect]
     Active Substance: FLURAZEPAM HYDROCHLORIDE
     Indication: INSOMNIA
     Dosage: 15 MG
     Route: 065

REACTIONS (5)
  - Somnolence [Unknown]
  - Aphasia [Unknown]
  - Seizure [Unknown]
  - Toxicity to various agents [Unknown]
  - Confusional state [Unknown]
